FAERS Safety Report 21098481 (Version 1)
Quarter: 2022Q3

REPORT INFORMATION
  Report Type: Spontaneous
  Country: ZA (occurrence: ZA)
  Receive Date: 20220719
  Receipt Date: 20220719
  Transmission Date: 20221026
  Serious: Yes (Hospitalization, Other)
  Sender: FDA-Public Use
  Company Number: ZA-SUN PHARMACEUTICAL INDUSTRIES LTD-2022RR-345027

PATIENT
  Age: 28 Year
  Sex: Male

DRUGS (6)
  1. AMLODIPINE [Suspect]
     Active Substance: AMLODIPINE BESYLATE
     Indication: Product used for unknown indication
     Dosage: UNK
     Route: 065
  2. EPINEPHRINE [Suspect]
     Active Substance: EPINEPHRINE
     Indication: Product used for unknown indication
     Dosage: 1 MICROGRAM/KILOGRAM/MINUTE
     Route: 065
  3. CALCIUM [Concomitant]
     Active Substance: CALCIUM
     Indication: Product used for unknown indication
     Dosage: UNK
     Route: 065
  4. insulin euglycemic infusion [Concomitant]
     Indication: Product used for unknown indication
     Dosage: 2U/KG/HOUR
     Route: 065
  5. methylene blue bolus [Concomitant]
     Indication: Product used for unknown indication
     Dosage: 2 MILLIGRAM/KILOGRAM, BOLUS
     Route: 065
  6. methylene blue bolus [Concomitant]
     Dosage: 1MG/KG/HOUR INFUSION
     Route: 065

REACTIONS (3)
  - Toxicity to various agents [Unknown]
  - Hypotension [Unknown]
  - Drug ineffective [Unknown]
